FAERS Safety Report 12647482 (Version 1)
Quarter: 2016Q3

REPORT INFORMATION
  Report Type: Spontaneous
  Country: US (occurrence: US)
  Receive Date: 20160812
  Receipt Date: 20160812
  Transmission Date: 20161109
  Serious: No
  Sender: FDA-Public Use
  Company Number: US-BRAINTREE LABORATORIES-160243

PATIENT
  Age: 61 Year
  Sex: Female

DRUGS (1)
  1. GOLYTELY [Suspect]
     Active Substance: POLYETHYLENE GLYCOL 3350\POTASSIUM CHLORIDE\SODIUM BICARBONATE\SODIUM CHLORIDE\SODIUM SULFATE ANHYDROUS
     Indication: COLONOSCOPY
     Dosage: 2L
     Route: 048
     Dates: start: 20160402, end: 20160402

REACTIONS (11)
  - Nasal oedema [None]
  - Sputum increased [None]
  - Drug ineffective [None]
  - Myalgia [None]
  - Headache [None]
  - Back pain [None]
  - Dysphonia [None]
  - Nasal congestion [None]
  - Throat irritation [None]
  - Pharyngeal oedema [None]
  - Vocal cord inflammation [None]

NARRATIVE: CASE EVENT DATE: 20160402
